FAERS Safety Report 8905777 (Version 1)
Quarter: 2012Q4

REPORT INFORMATION
  Report Type: 
  Country: MX (occurrence: MX)
  Receive Date: 20121111
  Receipt Date: 20121111
  Transmission Date: 20130627
  Serious: Yes (Other)
  Sender: FDA-Public Use
  Company Number: PHHY2012MX102312

PATIENT
  Sex: Female

DRUGS (6)
  1. CO-DIOVAN [Suspect]
     Indication: HYPERTENSION
     Dosage: 1 tablet (160/12.5 mg) per day
  2. ANGIOTROFIN [Concomitant]
     Indication: CARDIAC DISORDER
     Dosage: 2 DF, per day
  3. ARAFA [Concomitant]
     Indication: ARTHRITIS
     Dosage: 1 DF, per day
     Dates: start: 2007
  4. TRAMADOL [Concomitant]
     Indication: ARTHRITIS
     Dosage: 1 DF, per day
     Dates: start: 2009
  5. RANTUDIL [Concomitant]
     Indication: PAIN
     Dosage: 1 DF, per day
     Dates: start: 2007
  6. ASPIRIN PROTECT [Concomitant]
     Indication: CARDIAC DISORDER
     Dosage: 1 DF, per day
     Dates: start: 2006

REACTIONS (2)
  - Coronary artery occlusion [Recovered/Resolved]
  - Micturition urgency [Recovered/Resolved]
